FAERS Safety Report 6302907-7 (Version None)
Quarter: 2009Q3

REPORT INFORMATION
  Report Type: 
  Country: None (occurrence: None)
  Receive Date: 20090810
  Receipt Date: 20090730
  Transmission Date: 20100115
  Serious: Yes (Life-Threatening, Hospitalization, Other)
  Sender: FDA-Public Use
  Company Number: NO-ELI_LILLY_AND_COMPANY-NO200907007128

PATIENT
  Sex: Female

DRUGS (8)
  1. ZYPREXA [Suspect]
     Indication: SCHIZOPHRENIA
     Dosage: 15 MG, DAILY (1/D)
     Route: 048
     Dates: start: 20080101, end: 20090707
  2. ZYPREXA [Suspect]
     Dosage: 20 MG, DAILY (1/D)
     Route: 030
     Dates: start: 20090101, end: 20090101
  3. ATARAX [Concomitant]
     Indication: SCHIZOPHRENIA
     Dosage: 25 MG, DAILY (1/D)
     Route: 048
     Dates: end: 20090704
  4. ATARAX [Concomitant]
     Dosage: 25 MG, 2/D
     Dates: start: 20090705, end: 20090707
  5. REMERON [Concomitant]
     Dosage: 60 MG, EACH EVENING
     Route: 048
  6. TRUXAL [Concomitant]
     Indication: SCHIZOPHRENIA
     Dosage: 30 MG, DAILY (1/D)
     Route: 048
     Dates: end: 20090704
  7. TRUXAL [Concomitant]
     Dosage: 30 MG, 2/D
     Route: 048
     Dates: start: 20090705, end: 20090707
  8. NOZINAN [Concomitant]
     Dosage: 150 MG, AS NEEDED
     Route: 048
     Dates: start: 20090705, end: 20090707

REACTIONS (9)
  - ALANINE AMINOTRANSFERASE INCREASED [None]
  - ASPARTATE AMINOTRANSFERASE INCREASED [None]
  - C-REACTIVE PROTEIN INCREASED [None]
  - CHILLS [None]
  - CONDITION AGGRAVATED [None]
  - HAEMATURIA [None]
  - PERIPHERAL COLDNESS [None]
  - RENAL FAILURE [None]
  - RHABDOMYOLYSIS [None]
